FAERS Safety Report 9784012 (Version 1)
Quarter: 2013Q4

REPORT INFORMATION
  Report Type: Spontaneous
  Country: US (occurrence: US)
  Receive Date: 20131226
  Receipt Date: 20131226
  Transmission Date: 20140711
  Serious: No
  Sender: FDA-Public Use
  Company Number: US-009507513-1312USA010544

PATIENT
  Sex: Female

DRUGS (2)
  1. INDOMETHACIN [Suspect]
     Indication: ARTHRALGIA
     Dosage: UNK
     Dates: start: 2008, end: 2009
  2. INDOMETHACIN [Suspect]
     Indication: PELVIC PAIN

REACTIONS (1)
  - Vision blurred [Unknown]
